FAERS Safety Report 23013823 (Version 1)
Quarter: 2023Q4

REPORT INFORMATION
  Report Type: Spontaneous
  Country: US (occurrence: US)
  Receive Date: 20231001
  Receipt Date: 20231001
  Transmission Date: 20240110
  Serious: No
  Sender: FDA-Public Use
  Company Number: US-ARGENX-2023-ARGX-US002039

PATIENT

DRUGS (1)
  1. VYVGART [Suspect]
     Active Substance: EFGARTIGIMOD ALFA-FCAB
     Indication: Myasthenia gravis
     Dosage: UNK
     Route: 042
     Dates: start: 202210

REACTIONS (9)
  - Dysphagia [Unknown]
  - Balance disorder [Unknown]
  - Asthenia [Unknown]
  - Vision blurred [Unknown]
  - Tremor [Unknown]
  - Nervousness [Unknown]
  - Hyperhidrosis [Unknown]
  - Cold sweat [Unknown]
  - Therapy non-responder [Unknown]
